FAERS Safety Report 6214671-0 (Version None)
Quarter: 2009Q2

REPORT INFORMATION
  Report Type: 
  Country: None (occurrence: None)
  Receive Date: 20090604
  Receipt Date: 20090526
  Transmission Date: 20091009
  Serious: Yes (Other)
  Sender: FDA-Public Use
  Company Number: DE-PFIZER INC-2009192929

PATIENT
  Age: 79 Year

DRUGS (1)
  1. AROMASIN [Suspect]
     Dosage: UNK
     Dates: start: 20070101, end: 20090201

REACTIONS (1)
  - POSTMENOPAUSAL HAEMORRHAGE [None]
